FAERS Safety Report 21530813 (Version 1)
Quarter: 2022Q4

REPORT INFORMATION
  Report Type: Spontaneous
  Country: US (occurrence: None)
  Receive Date: 20221028
  Receipt Date: 20221028
  Transmission Date: 20230113
  Serious: Yes (Hospitalization, Disabling)
  Sender: FDA-Public Use
  Company Number: None

PATIENT
  Age: 47 Year
  Sex: Male
  Weight: 112.49 kg

DRUGS (2)
  1. ESZOPICLONE [Suspect]
     Active Substance: ESZOPICLONE
     Indication: Sleep disorder therapy
     Dosage: FREQUENCY : AT BEDTIME;?
     Route: 048
     Dates: start: 20211222, end: 20220824
  2. ESZOPICLONE [Suspect]
     Active Substance: ESZOPICLONE
     Indication: Insomnia

REACTIONS (3)
  - Intentional overdose [None]
  - Suicide attempt [None]
  - Unresponsive to stimuli [None]

NARRATIVE: CASE EVENT DATE: 20220829
